FAERS Safety Report 7617908-6 (Version None)
Quarter: 2011Q3

REPORT INFORMATION
  Report Type: 
  Country: None (occurrence: None)
  Receive Date: 20110718
  Receipt Date: 20110701
  Transmission Date: 20111222
  Serious: Yes (Other)
  Sender: FDA-Public Use
  Company Number: PHHY2011BR59264

PATIENT
  Sex: Male

DRUGS (2)
  1. DIOVAN [Suspect]
     Indication: HYPERTENSION
     Dosage: 160 MG, 1 TABLET A DAY
     Route: 048
  2. DIOVAN [Suspect]
     Dosage: 320MG, 1 TABLET A DAY

REACTIONS (6)
  - WALLENBERG SYNDROME [None]
  - BALANCE DISORDER [None]
  - VENOUS OCCLUSION [None]
  - SPEECH DISORDER [None]
  - BLOOD PRESSURE INCREASED [None]
  - GAIT DISTURBANCE [None]
